FAERS Safety Report 21305473 (Version 1)
Quarter: 2022Q3

REPORT INFORMATION
  Report Type: Spontaneous
  Country: FR (occurrence: FR)
  Receive Date: 20220908
  Receipt Date: 20220908
  Transmission Date: 20221027
  Serious: Yes (Death)
  Sender: FDA-Public Use
  Company Number: None

PATIENT
  Age: 37 Year
  Sex: Female
  Weight: 55 kg

DRUGS (7)
  1. PALIPERIDONE [Suspect]
     Active Substance: PALIPERIDONE
     Indication: Product used for unknown indication
     Dosage: UNIT DOSE : 525 MG, FREQUENCY TIME : 3 MONTH, THERAPY START DATE NASK
     Dates: end: 20220602
  2. VENLAFAXINE HYDROCHLORIDE [Suspect]
     Active Substance: VENLAFAXINE HYDROCHLORIDE
     Indication: Product used for unknown indication
     Dosage: CHLORHYDRATE DE VENLAFAXINE, THERAPY START DATE : NASK, UNIT DOSE: 37.5 MG
     Dates: end: 20220602
  3. OLANZAPINE [Suspect]
     Active Substance: OLANZAPINE
     Indication: Product used for unknown indication
     Dosage: THERAPY START DATE : NASK, UNIT DOSE : 15 MG
     Dates: end: 20220602
  4. TRIMEPRAZINE [Suspect]
     Active Substance: TRIMEPRAZINE
     Indication: Product used for unknown indication
     Dosage: THERAPY START DATE : NASK, UNIT DOSE : 5 MG
     Dates: end: 20220602
  5. XANAX [Suspect]
     Active Substance: ALPRAZOLAM
     Indication: Product used for unknown indication
     Dosage: XANAX 0.50 MG, SCORED TABLET, UNIT DOSE: 2 MG, THERAPY START DATE : NASK
     Dates: end: 20220602
  6. TROPATEPINE HYDROCHLORIDE [Suspect]
     Active Substance: TROPATEPINE HYDROCHLORIDE
     Indication: Product used for unknown indication
     Dosage: CHLORHYDRATE DE TROPATEPINE, UNIT DOSE: 10 MG, THERAPY START DATE: NASK
     Dates: end: 20220602
  7. LOXAPINE SUCCINATE [Suspect]
     Active Substance: LOXAPINE SUCCINATE
     Indication: Product used for unknown indication
     Dosage: LOXAPINE (SUCCINATE DE), UNIT DOSE: 200 MG, THERAPY START DATE : NASK
     Dates: end: 20220602

REACTIONS (1)
  - Cardiogenic shock [Fatal]

NARRATIVE: CASE EVENT DATE: 20220524
